FAERS Safety Report 21801512 (Version 1)
Quarter: 2022Q4

REPORT INFORMATION
  Report Type: Report from Study
  Country: PL (occurrence: PL)
  Receive Date: 20221230
  Receipt Date: 20221230
  Transmission Date: 20230112
  Serious: Yes (Life-Threatening, Hospitalization)
  Sender: FDA-Public Use
  Company Number: PL-ABBVIE-4222164

PATIENT
  Age: 61 Year
  Sex: Female
  Weight: 68 kg

DRUGS (5)
  1. VENETOCLAX [Suspect]
     Active Substance: VENETOCLAX
     Indication: Chronic lymphocytic leukaemia
     Dosage: ON 14 NOV 2022, PATIENT RECEIVED LAST DOSE OF VENETOCLAX PRIOR TO ADVERSE EVENT.
     Dates: start: 20220921, end: 20221114
  2. PIRTOBRUTINIB [Concomitant]
     Active Substance: PIRTOBRUTINIB
     Indication: Chronic lymphocytic leukaemia
     Dosage: ON 14/NOV/2022, PATIENT RECEIVED LAST DOSE OF PIRTOBRUTINIB PRIOR TO ADVERSE?EVENT.
     Dates: start: 20220921, end: 20221114
  3. CARBAMAZEPINE [Concomitant]
     Active Substance: CARBAMAZEPINE
     Indication: Epilepsy
     Dates: start: 2022
  4. LAMOTRIGINE [Concomitant]
     Active Substance: LAMOTRIGINE
     Indication: Epilepsy
     Dates: start: 20220506
  5. ALPRAZOLAM [Concomitant]
     Active Substance: ALPRAZOLAM
     Indication: Epilepsy
     Dates: start: 2020

REACTIONS (1)
  - Neutropenia [Recovering/Resolving]

NARRATIVE: CASE EVENT DATE: 20221123
